FAERS Safety Report 13297346 (Version 1)
Quarter: 2017Q1

REPORT INFORMATION
  Report Type: Spontaneous
  Country: US (occurrence: US)
  Receive Date: 20170306
  Receipt Date: 20170306
  Transmission Date: 20170428
  Serious: Yes (Hospitalization, Other)
  Sender: FDA-Public Use
  Company Number: US-GLAXOSMITHKLINE-US2017GSK030199

PATIENT
  Age: 19 Year
  Sex: Female

DRUGS (3)
  1. DIPHENHYDRAMINE. [Suspect]
     Active Substance: DIPHENHYDRAMINE
     Indication: PRODUCT USED FOR UNKNOWN INDICATION
     Dosage: 300-500 MG AT ONE TIME
  2. LAMOTRIGINE. [Suspect]
     Active Substance: LAMOTRIGINE
     Indication: SEIZURE
  3. TOPIRAMATE. [Suspect]
     Active Substance: TOPIRAMATE
     Indication: SEIZURE

REACTIONS (5)
  - Drug resistance [Unknown]
  - Seizure [Unknown]
  - Haemodynamic instability [Unknown]
  - Overdose [Unknown]
  - Epilepsy [Unknown]
